FAERS Safety Report 16214527 (Version 1)
Quarter: 2019Q2

REPORT INFORMATION
  Report Type: Report from Study
  Country: US (occurrence: US)
  Receive Date: 20190418
  Receipt Date: 20190418
  Transmission Date: 20190711
  Serious: Yes (Death, Hospitalization)
  Sender: FDA-Public Use
  Company Number: US-ACTELION-A-US2019-187998

PATIENT
  Age: 74 Year
  Sex: Female

DRUGS (4)
  1. UPTRAVI [Suspect]
     Active Substance: SELEXIPAG
     Indication: PULMONARY ARTERIAL HYPERTENSION
     Dosage: 400 MCG, BID
     Route: 048
     Dates: start: 20190219
  2. UPTRAVI [Suspect]
     Active Substance: SELEXIPAG
     Dosage: 600 MCG, BID
     Route: 048
     Dates: start: 20190219, end: 20190405
  3. REMODULIN [Concomitant]
     Active Substance: TREPROSTINIL
  4. LETAIRIS [Concomitant]
     Active Substance: AMBRISENTAN

REACTIONS (14)
  - Sinusitis [Unknown]
  - General physical health deterioration [Unknown]
  - Nausea [Unknown]
  - Hypotension [Unknown]
  - Pain [Unknown]
  - Dyspnoea [Unknown]
  - Therapy change [Unknown]
  - Pyrexia [Unknown]
  - Presyncope [Unknown]
  - Oropharyngeal pain [Unknown]
  - Headache [Unknown]
  - Nasal congestion [Unknown]
  - Pain in jaw [Unknown]
  - Death [Fatal]

NARRATIVE: CASE EVENT DATE: 201903
